FAERS Safety Report 6426890-9 (Version None)
Quarter: 2009Q4

REPORT INFORMATION
  Report Type: 
  Country: None (occurrence: None)
  Receive Date: 20091104
  Receipt Date: 20091026
  Transmission Date: 20100525
  Serious: Yes (Hospitalization)
  Sender: FDA-Public Use
  Company Number: US-WATSON-2009-09021

PATIENT
  Sex: Female

DRUGS (1)
  1. PREDNISONE (WATSON LABORATORIES) [Suspect]
     Indication: POLYMYALGIA RHEUMATICA
     Dosage: 1 TABLET, DAILY
     Route: 048
     Dates: start: 20051101, end: 20090201

REACTIONS (8)
  - CONTUSION [None]
  - EYELID PTOSIS [None]
  - HEADACHE [None]
  - NAUSEA [None]
  - OESOPHAGITIS [None]
  - ORAL PAIN [None]
  - SKIN HAEMORRHAGE [None]
  - TEMPORAL ARTERITIS [None]
